FAERS Safety Report 7115223-0 (Version None)
Quarter: 2010Q4

REPORT INFORMATION
  Report Type: 
  Country: None (occurrence: None)
  Receive Date: 20101122
  Receipt Date: 20101109
  Transmission Date: 20110411
  Serious: Yes (Disabling, Other)
  Sender: FDA-Public Use
  Company Number: PHHY2010US66297

PATIENT
  Sex: Female

DRUGS (21)
  1. RECLAST [Suspect]
     Indication: OSTEOPOROSIS
     Dosage: 5 MG
     Route: 042
     Dates: start: 20100806
  2. LASIX [Concomitant]
  3. POTASSIUM CHLORIDE [Concomitant]
  4. CALCIUM [Concomitant]
  5. VITAMIN D [Concomitant]
  6. PENICILLIN [Concomitant]
     Indication: RASH
  7. DETROL [Concomitant]
     Indication: DIZZINESS
  8. CEPHALOSPORINES [Concomitant]
     Indication: URTICARIA
  9. ACIPHEX [Concomitant]
  10. PROTONIX [Concomitant]
  11. CELEBREX [Concomitant]
     Indication: OEDEMA
  12. INDERAL LA [Concomitant]
  13. COMPAZINE [Concomitant]
  14. HYDROCHLOROTHIAZIDE [Concomitant]
  15. BEXTRA [Concomitant]
  16. MORPHINE SULFATE [Concomitant]
  17. AMPICILLIN [Concomitant]
  18. TETRACYCLINE [Concomitant]
  19. DILANTIN [Concomitant]
  20. LISINOPRIL [Concomitant]
  21. KEFLEX [Concomitant]

REACTIONS (13)
  - ARTHRALGIA [None]
  - BLOOD CALCIUM DECREASED [None]
  - BLOOD CHLORIDE DECREASED [None]
  - BLOOD SODIUM DECREASED [None]
  - BONE PAIN [None]
  - C-REACTIVE PROTEIN INCREASED [None]
  - MOVEMENT DISORDER [None]
  - MUSCULOSKELETAL PAIN [None]
  - MUSCULOSKELETAL STIFFNESS [None]
  - MYALGIA [None]
  - PAIN [None]
  - PYREXIA [None]
  - RED BLOOD CELL SEDIMENTATION RATE INCREASED [None]
